FAERS Safety Report 16782729 (Version 4)
Quarter: 2020Q1

REPORT INFORMATION
  Report Type: Spontaneous
  Country: DE (occurrence: DE)
  Receive Date: 20190906
  Receipt Date: 20200117
  Transmission Date: 20200409
  Serious: Yes (Hospitalization, Other)
  Sender: FDA-Public Use
  Company Number: DE-BAUSCH-BL-2019-024604

PATIENT
  Age: 60 Year
  Sex: Female
  Weight: 103 kg

DRUGS (17)
  1. PROPOFOL. [Suspect]
     Active Substance: PROPOFOL
     Indication: PRODUCT USED FOR UNKNOWN INDICATION
     Route: 065
  2. OMEGA 3 [Concomitant]
     Active Substance: OMEGA-3 FATTY ACIDS
     Indication: PRODUCT USED FOR UNKNOWN INDICATION
     Route: 065
  3. ZINC. [Concomitant]
     Active Substance: ZINC
     Indication: PRODUCT USED FOR UNKNOWN INDICATION
     Route: 065
  4. CLARITHROMYCIN. [Suspect]
     Active Substance: CLARITHROMYCIN
     Indication: PRODUCT USED FOR UNKNOWN INDICATION
     Route: 065
  5. HCT [Concomitant]
     Active Substance: HYDROCHLOROTHIAZIDE
     Indication: PRODUCT USED FOR UNKNOWN INDICATION
     Route: 048
  6. PANTOPRAZOL HEXAL [Concomitant]
     Active Substance: PANTOPRAZOLE
     Indication: PRODUCT USED FOR UNKNOWN INDICATION
     Dosage: (IN THE MORNINGS)
     Route: 065
  7. VALSARTAN. [Suspect]
     Active Substance: VALSARTAN
     Indication: HYPERTENSION
     Dosage: 80/12.5 MG, IN THE MORNINGS
     Route: 065
  8. PENICILLIN NOS [Suspect]
     Active Substance: PENICILLIN
     Indication: PRODUCT USED FOR UNKNOWN INDICATION
     Route: 065
  9. IODIDE [Suspect]
     Active Substance: IODINE
     Indication: GOITRE
     Dosage: IN MORNING
     Route: 048
     Dates: start: 2000
  10. IBUPROFEN RATIOPHARM [Concomitant]
     Indication: PAIN
     Dosage: (MORNING)
     Route: 065
  11. VALSARTAN - 1 A PHARMA [Suspect]
     Active Substance: VALSARTAN
     Indication: HYPERTENSION
     Route: 065
     Dates: start: 20141202, end: 2018
  12. VOTUM [Concomitant]
     Indication: PRODUCT USED FOR UNKNOWN INDICATION
     Dosage: (10MG) MORNING
     Route: 065
     Dates: start: 2005
  13. VALSARTAN 1 A PHARMA PLUS [Suspect]
     Active Substance: VALSARTAN
     Indication: PRODUCT USED FOR UNKNOWN INDICATION
     Dosage: (80/12.5 MG, IN THE MORNINGS)
     Route: 065
     Dates: start: 20141202, end: 201808
  14. HEPARIN SODIUM. [Concomitant]
     Active Substance: HEPARIN SODIUM
     Indication: LYMPHADENECTOMY
     Route: 005
  15. VALDOXAN [Concomitant]
     Active Substance: AGOMELATINE
     Indication: PRODUCT USED FOR UNKNOWN INDICATION
     Dosage: (MORNING)
     Route: 065
     Dates: start: 20120116
  16. DICLOFENAC [Suspect]
     Active Substance: DICLOFENAC
     Indication: PRODUCT USED FOR UNKNOWN INDICATION
     Route: 065
  17. DOXYCYCLINE. [Suspect]
     Active Substance: DOXYCYCLINE
     Indication: PRODUCT USED FOR UNKNOWN INDICATION
     Route: 065

REACTIONS (32)
  - Lipoedema [Unknown]
  - Procedural complication [Unknown]
  - Cough [Unknown]
  - Thrombosis [Unknown]
  - Back pain [Unknown]
  - Myelopathy [Unknown]
  - General physical health deterioration [Unknown]
  - Asthenia [Unknown]
  - Osteoarthritis [Unknown]
  - Dysuria [Recovering/Resolving]
  - Constipation [Unknown]
  - Urinary tract infection enterococcal [Recovering/Resolving]
  - Sneezing [Unknown]
  - Urinary incontinence [Recovering/Resolving]
  - Bladder spasm [Unknown]
  - Polyuria [Recovering/Resolving]
  - Pollakiuria [Recovering/Resolving]
  - Spinal cord disorder [Unknown]
  - Polyarthritis [Not Recovered/Not Resolved]
  - Fatigue [Unknown]
  - Lymphoedema [Unknown]
  - Vaginal haemorrhage [Unknown]
  - Anal incontinence [Recovering/Resolving]
  - Fistula discharge [Unknown]
  - Sleep disorder [Unknown]
  - Spinal pain [Unknown]
  - Fibromyalgia [Unknown]
  - Carpal tunnel syndrome [Unknown]
  - Urinary tract infection [Unknown]
  - Drug hypersensitivity [Unknown]
  - Endometrial cancer [Recovered/Resolved]
  - Pain [Recovering/Resolving]

NARRATIVE: CASE EVENT DATE: 2006
